FAERS Safety Report 8776883 (Version 2)
Quarter: 2012Q4

REPORT INFORMATION
  Report Type: 
  Country: GB (occurrence: GB)
  Receive Date: 20120911
  Receipt Date: 20121001
  Transmission Date: 20130627
  Serious: Yes (Other)
  Sender: FDA-Public Use
  Company Number: GB-PFIZER INC-2012218642

PATIENT
  Age: 48 Year
  Sex: Male

DRUGS (1)
  1. SILDENAFIL CITRATE [Suspect]
     Dosage: 1500 mg over a 4-hour period

REACTIONS (5)
  - Intentional drug misuse [Unknown]
  - Scotoma [Not Recovered/Not Resolved]
  - Visual field defect [Not Recovered/Not Resolved]
  - Vision blurred [Unknown]
  - Chromatopsia [Unknown]
